FAERS Safety Report 10265068 (Version 2)
Quarter: 2014Q2

REPORT INFORMATION
  Report Type: Report from Study
  Country: CA (occurrence: CA)
  Receive Date: 20140627
  Receipt Date: 20140627
  Transmission Date: 20141212
  Serious: Yes (Other)
  Sender: FDA-Public Use
  Company Number: CA-JNJFOC-20140512438

PATIENT
  Age: 61 Year
  Sex: Female
  Weight: 67 kg

DRUGS (4)
  1. REMICADE [Suspect]
     Indication: CROHN^S DISEASE
     Dosage: THE PATIENT HAS HAD 2 LOADING DOSE.
     Route: 042
     Dates: start: 20140509
  2. IMURAN [Suspect]
     Indication: PRODUCT USED FOR UNKNOWN INDICATION
     Route: 065
     Dates: end: 20140609
  3. CIPRALEX [Concomitant]
     Route: 048
  4. ZOPICLONE [Concomitant]
     Route: 048

REACTIONS (2)
  - Pancreatitis [Recovered/Resolved]
  - Oral candidiasis [Recovering/Resolving]
